FAERS Safety Report 9312237 (Version 1)
Quarter: 2013Q2

REPORT INFORMATION
  Report Type: Spontaneous
  Country: US (occurrence: US)
  Receive Date: 20130528
  Receipt Date: 20130528
  Transmission Date: 20140414
  Serious: No
  Sender: FDA-Public Use
  Company Number: US-MYLANLABS-2013S1009730

PATIENT
  Age: 66 Year
  Sex: Female
  Weight: 92.08 kg

DRUGS (5)
  1. MONTELUKAST SODIUM [Suspect]
     Indication: ASTHMA
     Route: 048
     Dates: start: 201301, end: 20130503
  2. ZYRTEC [Concomitant]
  3. SYNTHROID [Concomitant]
     Indication: HYPOTHYROIDISM
  4. LISINOPRIL [Concomitant]
     Indication: BLOOD PRESSURE INCREASED
  5. HCTZ [Concomitant]
     Indication: BLOOD PRESSURE INCREASED

REACTIONS (1)
  - Eructation [Not Recovered/Not Resolved]
